FAERS Safety Report 17851185 (Version 1)
Quarter: 2020Q2

REPORT INFORMATION
  Report Type: Spontaneous
  Country: US (occurrence: US)
  Receive Date: 20200602
  Receipt Date: 20200602
  Transmission Date: 20200714
  Serious: No
  Sender: FDA-Public Use
  Company Number: US-FOUNDATIONCONSUMERHC-2019-US-022214

PATIENT
  Sex: Female

DRUGS (1)
  1. PLAN B ONE-STEP [Suspect]
     Active Substance: LEVONORGESTREL
     Indication: POST COITAL CONTRACEPTION
     Dosage: UNKNOWN
     Route: 065
     Dates: start: 20191110, end: 20191110

REACTIONS (6)
  - Nausea [Unknown]
  - Dysmenorrhoea [Unknown]
  - Menstruation delayed [Unknown]
  - Mood swings [Unknown]
  - Food craving [Unknown]
  - Increased appetite [Unknown]
